FAERS Safety Report 8365885-5 (Version None)
Quarter: 2012Q2

REPORT INFORMATION
  Report Type: 
  Country: None (occurrence: None)
  Receive Date: 20120517
  Receipt Date: 20120508
  Transmission Date: 20120825
  Serious: Yes (Other)
  Sender: FDA-Public Use
  Company Number: JP-ACCORD-010133

PATIENT
  Age: 74 Year
  Sex: Male

DRUGS (1)
  1. DOCETAXEL [Suspect]
     Dosage: 70MG/M2 EVERY 4 WEEKS AS OF DECEMBER.
     Route: 042

REACTIONS (2)
  - PNEUMONIA [None]
  - NEUTROPENIA [None]
